FAERS Safety Report 6748811-1 (Version None)
Quarter: 2010Q2

REPORT INFORMATION
  Report Type: 
  Country: None (occurrence: None)
  Receive Date: 20100601
  Receipt Date: 20100520
  Transmission Date: 20101027
  Serious: Yes (Disabling, Other)
  Sender: FDA-Public Use
  Company Number: PHHY2010JP07654

PATIENT
  Sex: Male
  Weight: 58 kg

DRUGS (21)
  1. TEGRETOL [Suspect]
     Indication: EPILEPSY
     Dosage: 300 MG, DAILY
     Route: 048
     Dates: start: 20100122, end: 20100125
  2. TEGRETOL [Suspect]
     Dosage: 200 MG, DAILY
     Route: 048
     Dates: start: 20100202, end: 20100204
  3. TEGRETOL [Suspect]
     Dosage: 400 MG, DAILY
     Dates: start: 20100205, end: 20100206
  4. TEGRETOL [Suspect]
     Dosage: 800 MG, DAILY
     Dates: start: 20100207, end: 20100217
  5. DEPAKENE [Suspect]
     Dosage: UNK
     Dates: end: 20100125
  6. GASTER D [Concomitant]
     Indication: PROPHYLAXIS
     Dosage: 40 MG, UNK
     Route: 048
     Dates: start: 20100115
  7. GABAPENTIN [Concomitant]
     Indication: EPILEPSY
     Dosage: 2400 MG, UNK
     Route: 048
     Dates: start: 20100118
  8. WARFARIN SODIUM [Concomitant]
     Indication: PROPHYLAXIS
     Dosage: 01 MG, UNK
     Route: 048
     Dates: start: 20100115
  9. MYSLEE [Concomitant]
     Indication: INSOMNIA
     Dosage: 10 MG, UNK
     Route: 048
     Dates: start: 20100122
  10. LAMICTAL [Concomitant]
     Indication: EPILEPSY
     Dosage: 25 MG, UNK
     Route: 048
     Dates: start: 20000122
  11. LAMICTAL [Concomitant]
     Dosage: 50 MG, UNK
     Route: 048
  12. PREDONINE [Concomitant]
     Indication: ENCEPHALITIS
     Dosage: 25 MG, UNK
     Route: 048
     Dates: start: 20100115
  13. CEFZON [Concomitant]
     Indication: URINARY TRACT INFECTION
     Dosage: 300 MG, UNK
     Route: 048
     Dates: start: 20100205, end: 20100207
  14. ALLELOCK [Concomitant]
     Indication: RASH
     Dosage: 10 MG, UNK
     Route: 048
     Dates: start: 20100209, end: 20100215
  15. ANTEBATE [Concomitant]
     Indication: RASH
     Dosage: UNK
     Route: 061
     Dates: start: 20100209, end: 20100215
  16. MAGMITT [Concomitant]
     Indication: CONSTIPATION
     Dosage: 990 MG, UNK
     Route: 048
     Dates: start: 20100209
  17. LOXONIN [Concomitant]
     Indication: PYREXIA
     Dosage: 60 MG, UNK
     Route: 048
     Dates: start: 20100215, end: 20100224
  18. CLARITH [Concomitant]
     Indication: URINARY TRACT INFECTION
     Dosage: 400 MG, UNK
     Route: 048
     Dates: start: 20100215, end: 20100217
  19. PHENYTOIN SODIUM [Concomitant]
     Indication: EPILEPSY
     Dosage: 500 MG, UNK
     Route: 042
     Dates: start: 20100201, end: 20100202
  20. PHENOBARBITAL SODIUM 100MG CAP [Concomitant]
     Indication: EPILEPSY
     Dosage: 500 MG, UNK
     Route: 042
     Dates: start: 20100202, end: 20100212
  21. ROCEPHIN [Concomitant]
     Indication: URINARY TRACT INFECTION
     Dosage: 01G, UNK
     Route: 042
     Dates: start: 20100206, end: 20100209

REACTIONS (8)
  - BLADDER CATHETERISATION [None]
  - DYSURIA [None]
  - LIVER DISORDER [None]
  - LYMPHADENOPATHY [None]
  - PYREXIA [None]
  - RASH [None]
  - URINARY RETENTION [None]
  - URINE OUTPUT DECREASED [None]
